FAERS Safety Report 24439954 (Version 3)
Quarter: 2025Q3

REPORT INFORMATION
  Report Type: Report from Study
  Country: US (occurrence: US)
  Receive Date: 20241015
  Receipt Date: 20250903
  Transmission Date: 20251021
  Serious: Yes (Hospitalization, Other)
  Sender: ABBVIE
  Company Number: US-ABBVIE-5961328

PATIENT
  Sex: Male

DRUGS (1)
  1. RINVOQ [Suspect]
     Active Substance: UPADACITINIB
     Indication: Colitis ulcerative
     Route: 048

REACTIONS (5)
  - Haemorrhage [Not Recovered/Not Resolved]
  - Gastrointestinal disorder [Unknown]
  - Herpes virus infection [Unknown]
  - Cardiac disorder [Unknown]
  - Sepsis [Recovering/Resolving]
